FAERS Safety Report 9108140 (Version 2)
Quarter: 2013Q3

REPORT INFORMATION
  Report Type: Report from Study
  Country: FR (occurrence: FR)
  Receive Date: 20130221
  Receipt Date: 20130812
  Transmission Date: 20140515
  Serious: Yes (Hospitalization)
  Sender: FDA-Public Use
  Company Number: FR-ELI_LILLY_AND_COMPANY-FR201302003659

PATIENT
  Age: 78 Year
  Sex: Female

DRUGS (3)
  1. TERIPARATIDE [Suspect]
     Indication: OSTEOPOROSIS
     Dosage: 20 UG, QD
     Route: 058
     Dates: start: 20120704
  2. LEVOTHYROX [Concomitant]
     Indication: OSTEOPOROSIS
     Dosage: 2 TABLETS, QD
  3. IDEOS [Concomitant]
     Indication: OSTEOPOROSIS
     Dosage: 50 MG, QD

REACTIONS (2)
  - Fall [Unknown]
  - Patella fracture [Unknown]
